FAERS Safety Report 5603036-8 (Version None)
Quarter: 2008Q1

REPORT INFORMATION
  Report Type: 
  Country: None (occurrence: None)
  Receive Date: 20080125
  Receipt Date: 20080118
  Transmission Date: 20080703
  Serious: Yes (Death)
  Sender: FDA-Public Use
  Company Number: ES-MERCK-0712USA08985

PATIENT
  Age: 66 Year
  Sex: Male

DRUGS (4)
  1. DECADRON [Suspect]
     Indication: HODGKIN'S DISEASE
     Route: 065
  2. BLEOMYCIN [Concomitant]
     Route: 065
  3. DOXORUBICIN [Concomitant]
     Route: 065
  4. VINBLASTINE SULFATE [Concomitant]
     Route: 065

REACTIONS (1)
  - HEPATITIS B [None]
